FAERS Safety Report 7055655-2 (Version None)
Quarter: 2010Q4

REPORT INFORMATION
  Report Type: 
  Country: None (occurrence: None)
  Receive Date: 20101021
  Receipt Date: 20101015
  Transmission Date: 20110411
  Serious: Yes (Death, Life-Threatening, Hospitalization)
  Sender: FDA-Public Use
  Company Number: IE-BAYER-201035908GPV

PATIENT
  Age: 74 Year
  Sex: Female
  Weight: 70 kg

DRUGS (7)
  1. SORAFENIB [Suspect]
     Indication: GASTRIC CANCER RECURRENT
     Dosage: AS USED: 400 MG
     Route: 048
     Dates: start: 20100414, end: 20100811
  2. NUSEALS ASPIRIN 75 MG [Suspect]
  3. ATECOR [Concomitant]
     Indication: HYPERTENSION
     Route: 048
     Dates: start: 20070101, end: 20100811
  4. MEGACE [Concomitant]
     Route: 048
     Dates: start: 20100201, end: 20100811
  5. ASPIRIN [Concomitant]
     Indication: HYPERTENSION
     Route: 048
     Dates: start: 20070101, end: 20100811
  6. MOTILIUM [Concomitant]
     Route: 048
     Dates: start: 20070101, end: 20100811
  7. PANADOL [Concomitant]
     Route: 048
     Dates: end: 20100811

REACTIONS (2)
  - HAEMORRHAGE INTRACRANIAL [None]
  - LOSS OF CONSCIOUSNESS [None]
